FAERS Safety Report 7559635-X (Version None)
Quarter: 2011Q2

REPORT INFORMATION
  Report Type: 
  Country: None (occurrence: None)
  Receive Date: 20110621
  Receipt Date: 20110609
  Transmission Date: 20111010
  Serious: Yes (Other)
  Sender: FDA-Public Use
  Company Number: FR-ROCHE-659910

PATIENT
  Sex: Female
  Weight: 57 kg

DRUGS (21)
  1. METHOXY POLYETHYLENE GLYCOL-EPOETIN BETA [Suspect]
     Route: 058
     Dates: start: 20090622
  2. METHOXY POLYETHYLENE GLYCOL-EPOETIN BETA [Interacting]
     Route: 058
     Dates: start: 20091028
  3. METHOXY POLYETHYLENE GLYCOL-EPOETIN BETA [Interacting]
     Route: 058
     Dates: start: 20090803
  4. METHOXY POLYETHYLENE GLYCOL-EPOETIN BETA [Interacting]
     Route: 058
     Dates: start: 20091214
  5. METHOXY POLYETHYLENE GLYCOL-EPOETIN BETA [Interacting]
     Route: 058
     Dates: start: 20100614
  6. ATORVASTATIN CALCIUM [Interacting]
     Dosage: DOSAGE: ONE TABLET DAILY.
     Route: 065
     Dates: end: 20090923
  7. INSULIN NOVOMIX [Concomitant]
     Dosage: DRUG: INSULINE NOVOMIX 30
  8. METHOXY POLYETHYLENE GLYCOL-EPOETIN BETA [Interacting]
     Route: 058
     Dates: start: 20091128
  9. METHOXY POLYETHYLENE GLYCOL-EPOETIN BETA [Interacting]
     Route: 058
     Dates: start: 20100114
  10. METHOXY POLYETHYLENE GLYCOL-EPOETIN BETA [Interacting]
     Route: 058
     Dates: start: 20100214
  11. METHOXY POLYETHYLENE GLYCOL-EPOETIN BETA [Interacting]
     Route: 058
     Dates: start: 20100514
  12. METHOXY POLYETHYLENE GLYCOL-EPOETIN BETA [Interacting]
     Route: 058
     Dates: start: 20100314
  13. CELLCEPT [Concomitant]
  14. PREDNISONE [Concomitant]
  15. METHOXY POLYETHYLENE GLYCOL-EPOETIN BETA [Interacting]
     Route: 058
     Dates: start: 20090706
  16. METHOXY POLYETHYLENE GLYCOL-EPOETIN BETA [Interacting]
     Route: 058
     Dates: start: 20100414
  17. METHOXY POLYETHYLENE GLYCOL-EPOETIN BETA [Interacting]
     Route: 058
     Dates: start: 20100314
  18. OMEPRAZOLE [Concomitant]
  19. METHOXY POLYETHYLENE GLYCOL-EPOETIN BETA [Interacting]
     Route: 058
     Dates: start: 20090720
  20. NEORAL [Concomitant]
  21. FERROUS SULFATE TAB [Concomitant]

REACTIONS (3)
  - DRUG INTERACTION [None]
  - RHABDOMYOLYSIS [None]
  - PLATELET COUNT DECREASED [None]
